FAERS Safety Report 11948300 (Version 1)
Quarter: 2016Q1

REPORT INFORMATION
  Report Type: Report from Study
  Country: DE (occurrence: DE)
  Receive Date: 20160125
  Receipt Date: 20160125
  Transmission Date: 20160526
  Serious: Yes (Death, Other)
  Sender: FDA-Public Use
  Company Number: DE-TEVA-626757GER

PATIENT

DRUGS (1)
  1. COPAXONE [Suspect]
     Active Substance: GLATIRAMER ACETATE
     Indication: MULTIPLE SCLEROSIS
     Dosage: 20 MILLIGRAM DAILY;
     Route: 064
     Dates: start: 20140404, end: 20150131

REACTIONS (2)
  - Foetal exposure during pregnancy [Unknown]
  - Foetal heart rate abnormal [Fatal]

NARRATIVE: CASE EVENT DATE: 2015
